FAERS Safety Report 17437454 (Version 2)
Quarter: 2020Q2

REPORT INFORMATION
  Report Type: Report from Study
  Country: US (occurrence: US)
  Receive Date: 20200219
  Receipt Date: 20200410
  Transmission Date: 20200713
  Serious: Yes (Hospitalization, Other)
  Sender: FDA-Public Use
  Company Number: US-GILEAD-2020-0451608

PATIENT
  Age: 26 Year
  Sex: Female

DRUGS (16)
  1. NEXIUM I.V. [Concomitant]
     Active Substance: ESOMEPRAZOLE SODIUM
  2. GABAPENTIN. [Concomitant]
     Active Substance: GABAPENTIN
  3. AZTREONAM LYSINE [Suspect]
     Active Substance: AZTREONAM LYSINE
     Indication: CYSTIC FIBROSIS
     Dosage: 75 MG, TID
     Route: 055
  4. TOBI [Concomitant]
     Active Substance: TOBRAMYCIN
  5. MULTIVITAMINUM [Concomitant]
     Active Substance: VITAMINS
  6. LEVOFLOXACIN. [Concomitant]
     Active Substance: LEVOFLOXACIN
  7. IPRATROPIUM BROMIDE. [Concomitant]
     Active Substance: IPRATROPIUM BROMIDE
  8. COLCRYS [Concomitant]
     Active Substance: COLCHICINE
  9. ELIQUIS [Concomitant]
     Active Substance: APIXABAN
  10. CYPROHEPTADINE HYDROCHLORIDE. [Concomitant]
     Active Substance: CYPROHEPTADINE HYDROCHLORIDE
  11. FLUTICASONE. [Concomitant]
     Active Substance: FLUTICASONE
  12. ONDANSETRON [Concomitant]
     Active Substance: ONDANSETRON
  13. PROBIOTIC BLEND [Concomitant]
  14. CITRACAL + D [CALCIUM CITRATE;COLECALCIFEROL] [Concomitant]
     Active Substance: CALCIUM CITRATE\CHOLECALCIFEROL
  15. MELATONIN [Concomitant]
     Active Substance: MELATONIN
  16. TRAMADOL. [Concomitant]
     Active Substance: TRAMADOL

REACTIONS (1)
  - Cystic fibrosis [Unknown]
